FAERS Safety Report 9402051 (Version 1)
Quarter: 2013Q3

REPORT INFORMATION
  Report Type: Report from Study
  Country: US (occurrence: US)
  Receive Date: 20130716
  Receipt Date: 20130716
  Transmission Date: 20140515
  Serious: Yes (Hospitalization, Other)
  Sender: FDA-Public Use
  Company Number: PHEH2012US019800

PATIENT
  Age: 67 Year
  Sex: Female
  Weight: 79.8 kg

DRUGS (8)
  1. GLEEVEC [Suspect]
     Indication: CHRONIC MYELOID LEUKAEMIA
     Dosage: 400 MG, DAILY
     Route: 048
     Dates: start: 201010
  2. GLEEVEC [Suspect]
     Indication: GASTROINTESTINAL STROMAL TUMOUR
  3. AMBLEN [Concomitant]
     Dosage: 1 DF, UNK
     Route: 048
     Dates: start: 20120430
  4. HYDROCORTISONE ACETATE [Concomitant]
     Dosage: 25 MG, UNK
     Dates: start: 20120322
  5. OMEPRAZOLE [Concomitant]
     Dosage: 20 MG, UNK
     Route: 048
     Dates: start: 20120310
  6. PROMETHAZINE [Concomitant]
     Dosage: 25 MG, Q6H
     Route: 048
     Dates: start: 20120702
  7. PROPRANOLOL [Concomitant]
     Dosage: 80 MG, UNK
     Route: 048
     Dates: start: 20120415
  8. TRAMADOL [Concomitant]
     Dosage: 50 MG, Q6H
     Route: 048
     Dates: start: 20130610

REACTIONS (16)
  - Escherichia urinary tract infection [Recovered/Resolved]
  - Dysuria [Unknown]
  - Pollakiuria [Unknown]
  - Malaise [Unknown]
  - Pyrexia [Unknown]
  - Chills [Unknown]
  - Urinary tract pain [Unknown]
  - Stomach mass [Unknown]
  - Intra-abdominal pressure increased [Unknown]
  - Asthenopia [Unknown]
  - Pain [Unknown]
  - Decreased appetite [Unknown]
  - Red blood cell count decreased [Unknown]
  - Haemoglobin decreased [Unknown]
  - Haematocrit decreased [Unknown]
  - Lymphocyte count decreased [Unknown]
